FAERS Safety Report 15784966 (Version 5)
Quarter: 2019Q1

REPORT INFORMATION
  Report Type: Report from Study
  Country: US (occurrence: US)
  Receive Date: 20190103
  Receipt Date: 20190213
  Transmission Date: 20190417
  Serious: Yes (Hospitalization, Other)
  Sender: FDA-Public Use
  Company Number: US-GILEAD-2018-0373353

PATIENT
  Age: 62 Year
  Sex: Female

DRUGS (9)
  1. MIRALAX [Concomitant]
     Active Substance: POLYETHYLENE GLYCOL 3350
  2. UPTRAVI [Concomitant]
     Active Substance: SELEXIPAG
     Dosage: 1200 UG
  3. UPTRAVI [Concomitant]
     Active Substance: SELEXIPAG
     Dosage: 600 UG, BID
  4. COREG [Concomitant]
     Active Substance: CARVEDILOL
  5. NORVASC [Concomitant]
     Active Substance: AMLODIPINE BESYLATE
  6. AMBRISENTAN [Suspect]
     Active Substance: AMBRISENTAN
     Indication: PRODUCT USED FOR UNKNOWN INDICATION
     Dosage: 10 MG, QD
     Route: 065
     Dates: start: 20141027
  7. TADALAFIL. [Concomitant]
     Active Substance: TADALAFIL
  8. UPTRAVI [Concomitant]
     Active Substance: SELEXIPAG
     Dosage: 1400 UG
  9. AMLODIPINE [Concomitant]
     Active Substance: AMLODIPINE BESYLATE

REACTIONS (26)
  - Diarrhoea [Not Recovered/Not Resolved]
  - Fatigue [Not Recovered/Not Resolved]
  - Pain [Unknown]
  - Paranasal sinus hypersecretion [Unknown]
  - Dizziness [Unknown]
  - Headache [Not Recovered/Not Resolved]
  - Contusion [Unknown]
  - Incontinence [Not Recovered/Not Resolved]
  - Flatulence [Not Recovered/Not Resolved]
  - Nausea [Not Recovered/Not Resolved]
  - Hypotension [Not Recovered/Not Resolved]
  - Myalgia [Not Recovered/Not Resolved]
  - Dyspnoea [Not Recovered/Not Resolved]
  - Pain in jaw [Not Recovered/Not Resolved]
  - Sinus headache [Unknown]
  - Somnolence [Not Recovered/Not Resolved]
  - Musculoskeletal chest pain [Not Recovered/Not Resolved]
  - Cough [Unknown]
  - Dyspnoea [Unknown]
  - Abdominal discomfort [Not Recovered/Not Resolved]
  - Road traffic accident [Unknown]
  - Anal incontinence [Not Recovered/Not Resolved]
  - Dizziness postural [Unknown]
  - Influenza [Unknown]
  - Pain [Not Recovered/Not Resolved]
  - Lethargy [Not Recovered/Not Resolved]
